FAERS Safety Report 6822858-9 (Version None)
Quarter: 2010Q3

REPORT INFORMATION
  Report Type: 
  Country: None (occurrence: None)
  Receive Date: 20100707
  Receipt Date: 20100707
  Transmission Date: 20110219
  Serious: Yes (Life-Threatening, Hospitalization)
  Sender: FDA-Public Use
  Company Number: None

PATIENT
  Age: 40 Year
  Sex: Female

DRUGS (9)
  1. METHOTREXATE [Suspect]
     Indication: PSORIATIC ARTHROPATHY
  2. ENBREL [Suspect]
     Indication: PSORIATIC ARTHROPATHY
  3. HUMIRA [Concomitant]
  4. CYCLOBENZAPRINE [Concomitant]
  5. PLAVIX [Concomitant]
  6. DOCUSATE [Concomitant]
  7. PREGABALIN [Concomitant]
  8. ASPIRIN [Concomitant]
  9. METOPROLOL [Concomitant]

REACTIONS (7)
  - ACUTE HEPATIC FAILURE [None]
  - ACUTE RESPIRATORY DISTRESS SYNDROME [None]
  - ASPERGILLOSIS [None]
  - BLASTOMYCOSIS [None]
  - ENCEPHALOPATHY [None]
  - HISTOPLASMOSIS DISSEMINATED [None]
  - SHOCK [None]
